FAERS Safety Report 12965819 (Version 1)
Quarter: 2016Q4

REPORT INFORMATION
  Report Type: Spontaneous
  Country: US (occurrence: US)
  Receive Date: 20161122
  Receipt Date: 20161122
  Transmission Date: 20170207
  Serious: No
  Sender: FDA-Public Use
  Company Number: US-ASTRAZENECA-2016SF22217

PATIENT
  Age: 23409 Day
  Sex: Male
  Weight: 120.2 kg

DRUGS (5)
  1. BYDUREON [Suspect]
     Active Substance: EXENATIDE
     Indication: TYPE 2 DIABETES MELLITUS
     Route: 058
     Dates: start: 20161016
  2. CHOLESTEROL MEDICINE [Concomitant]
     Active Substance: UNSPECIFIED INGREDIENT
     Indication: BLOOD CHOLESTEROL ABNORMAL
  3. DIABETES MEDICINE [Concomitant]
     Indication: DIABETES MELLITUS
  4. HEART MEDICINE [Concomitant]
     Active Substance: UNSPECIFIED INGREDIENT
     Indication: CARDIAC DISORDER
  5. ASTHMA MEDICINE [Concomitant]
     Indication: ASTHMA

REACTIONS (6)
  - Application site bruise [Not Recovered/Not Resolved]
  - Injection site mass [Not Recovered/Not Resolved]
  - Retching [Recovered/Resolved]
  - Intentional product misuse [Not Recovered/Not Resolved]
  - Nausea [Recovered/Resolved]
  - Product quality issue [Unknown]

NARRATIVE: CASE EVENT DATE: 20161016
